FAERS Safety Report 20212118 (Version 1)
Quarter: 2021Q4

REPORT INFORMATION
  Report Type: Other
  Country: US (occurrence: US)
  Receive Date: 20211221
  Receipt Date: 20211221
  Transmission Date: 20220303
  Serious: No
  Sender: FDA-Public Use
  Company Number: US-ACORDA-ACO_171078_2021

PATIENT
  Age: 66 Year
  Sex: Male

DRUGS (3)
  1. INBRIJA [Suspect]
     Active Substance: LEVODOPA
     Indication: Parkinson^s disease
     Dosage: 1 DOSAGE FORM, PRN (NOT TO EXCEED 5 DOSES A DAY)
     Dates: start: 202111
  2. INBRIJA [Suspect]
     Active Substance: LEVODOPA
     Indication: On and off phenomenon
  3. RYTARY [Concomitant]
     Active Substance: CARBIDOPA\LEVODOPA
     Indication: Product used for unknown indication
     Dosage: 48.75/195MG; 2 PILLS EVERY 4 HOURS ALTERNATED WITH 23.75/95 MG; 2 PILLS EVERY 4 HOURS
     Route: 065

REACTIONS (6)
  - Restlessness [Not Recovered/Not Resolved]
  - Therapeutic product effect variable [Unknown]
  - Product residue present [Unknown]
  - Device use issue [Unknown]
  - Intentional underdose [Unknown]
  - Cough [Not Recovered/Not Resolved]

NARRATIVE: CASE EVENT DATE: 20211101
